FAERS Safety Report 8239438-3 (Version None)
Quarter: 2012Q1

REPORT INFORMATION
  Report Type: 
  Country: None (occurrence: None)
  Receive Date: 20120326
  Receipt Date: 20120319
  Transmission Date: 20120608
  Serious: Yes (Hospitalization)
  Sender: FDA-Public Use
  Company Number: 2011SP052929

PATIENT
  Age: 76 Year
  Sex: Female

DRUGS (13)
  1. VALSARTAN 07/22/2011 - PRESENT [Concomitant]
  2. OMEPRAZOLE 10/30/2009 - PRESENT [Concomitant]
  3. RILMAZAFONE HYDROCHLORIDE 07/08/2011 - PRESENT [Concomitant]
  4. PAROXETINE HYDROCHLORIDE 10/16/2009 - PRESENT [Concomitant]
  5. MYSLEE - 07/08/2011 [Concomitant]
  6. SENNOSIDE 04/13/2009 - PRESENT [Concomitant]
  7. MIRTAZAPINE [Suspect]
     Indication: DEPRESSION
     Dosage: 15 MG;QD;PO 7.5 MG;QD;PO
     Route: 048
     Dates: start: 20110708, end: 20110721
  8. MIRTAZAPINE [Suspect]
     Indication: DEPRESSION
     Dosage: 15 MG;QD;PO 7.5 MG;QD;PO
     Route: 048
     Dates: start: 20110722, end: 20110930
  9. FURSULTIAMINE - PRESENT [Concomitant]
  10. ETIZOLAM 05/14/2010 - PRESENT [Concomitant]
  11. LEVOTHYROXINE SODIUM 04/13/2009 - PRESENT [Concomitant]
  12. LANDSEN - 07/08/2011 [Concomitant]
  13. FUROSEMIDE 07/22/2011 - PRESENT [Concomitant]

REACTIONS (5)
  - INCREASED APPETITE [None]
  - DIZZINESS [None]
  - ANTINUCLEAR ANTIBODY INCREASED [None]
  - UPPER RESPIRATORY TRACT INFLAMMATION [None]
  - HEPATITIS [None]
